FAERS Safety Report 4650163-8 (Version None)
Quarter: 2005Q2

REPORT INFORMATION
  Report Type: 
  Country: None (occurrence: None)
  Receive Date: 20050502
  Receipt Date: 20050418
  Transmission Date: 20051028
  Serious: Yes (Hospitalization)
  Sender: FDA-Public Use
  Company Number: US-KINGPHARMUSA00001-K200500516

PATIENT
  Age: 17 Year
  Sex: Male

DRUGS (11)
  1. SEPTRA [Suspect]
     Indication: INFECTION PROPHYLAXIS
     Dosage: 80 MG, QD
     Route: 048
     Dates: start: 20040601
  2. SEPTRA [Suspect]
     Dosage: 80 MG, QD
     Route: 048
     Dates: start: 20050323, end: 20050329
  3. FOSAMPRENAVIR [Suspect]
     Indication: HIV INFECTION
     Dosage: 1,400 MG, QD
     Route: 048
     Dates: start: 20050301
  4. FOSAMPRENAVIR [Suspect]
     Dosage: 1,400 MG, QD
     Route: 048
     Dates: start: 20050323, end: 20050329
  5. RITONAVIR [Suspect]
     Indication: HIV INFECTION
     Dosage: 200 MG, QD
     Route: 048
     Dates: start: 20050301, end: 20050309
  6. RITONAVIR [Suspect]
     Dosage: 200 MG, QD
     Route: 048
     Dates: start: 20050323, end: 20050329
  7. ZIAGEN [Suspect]
     Indication: HIV INFECTION
     Dosage: 600 MG, QD
     Route: 048
     Dates: start: 20050301, end: 20050309
  8. LAMIVUDINE [Suspect]
     Indication: HIV INFECTION
     Dosage: 300 MG, QD
     Route: 048
     Dates: start: 20050228
  9. COMBIVIR [Suspect]
     Indication: HIV INFECTION
     Dosage: 2 TABLETS, QD
     Route: 048
     Dates: start: 20050323, end: 20050329
  10. COMBIVIR [Suspect]
     Dosage: 2 TABLETS, QD
     Route: 048
     Dates: start: 20050401
  11. ACETAMINOPHEN [Concomitant]

REACTIONS (22)
  - ABDOMINAL PAIN [None]
  - BACTERIAL INFECTION [None]
  - CHILLS [None]
  - CONJUNCTIVITIS [None]
  - COUGH [None]
  - DECREASED APPETITE [None]
  - ERYTHEMA [None]
  - FATIGUE [None]
  - GASTROINTESTINAL DISORDER [None]
  - HEADACHE [None]
  - HYPERSENSITIVITY [None]
  - MALAISE [None]
  - MYALGIA [None]
  - NAUSEA [None]
  - PYREXIA [None]
  - RASH MACULO-PAPULAR [None]
  - SCLERAL DISCOLOURATION [None]
  - SOMNOLENCE [None]
  - SWELLING FACE [None]
  - TACHYCARDIA [None]
  - URTICARIA [None]
  - VIRAL INFECTION [None]
